FAERS Safety Report 6106346-3 (Version None)
Quarter: 2009Q1

REPORT INFORMATION
  Report Type: 
  Country: None (occurrence: None)
  Receive Date: 20090306
  Receipt Date: 20090304
  Transmission Date: 20090719
  Serious: Yes (Death, Other)
  Sender: FDA-Public Use
  Company Number: PHHY2008JP09889

PATIENT
  Sex: Female

DRUGS (7)
  1. ZOMETA [Suspect]
     Indication: BONE LESION
     Dosage: 4 MG, QMO
     Route: 042
     Dates: start: 20070518, end: 20080314
  2. NAVELBINE [Concomitant]
     Indication: BREAST CANCER
     Dosage: 40 MG, UNK
     Route: 042
     Dates: start: 20070518, end: 20070629
  3. CAMPTOSAR [Concomitant]
     Indication: BREAST CANCER
     Dosage: 100 MG, UNK
     Route: 042
     Dates: start: 20071122, end: 20080509
  4. TS 1 [Concomitant]
     Indication: BREAST CANCER
     Dosage: 80 MG/DAY
     Route: 048
     Dates: start: 20070713, end: 20070920
  5. LOXONIN [Concomitant]
     Indication: TUMOUR PAIN
     Dosage: UNK
     Route: 048
     Dates: start: 20070518, end: 20080517
  6. MORPHINE SULFATE [Concomitant]
     Indication: TUMOUR PAIN
     Dosage: UNK
     Route: 048
     Dates: start: 20071026, end: 20080517
  7. PREDONINE [Concomitant]
     Dosage: 5 MG, UNK
     Route: 048

REACTIONS (7)
  - BONE DISORDER [None]
  - GINGIVAL SWELLING [None]
  - JAW DISORDER [None]
  - MALIGNANT NEOPLASM PROGRESSION [None]
  - OEDEMA MOUTH [None]
  - ORAL SURGERY [None]
  - OSTEONECROSIS [None]
